FAERS Safety Report 20291285 (Version 1)
Quarter: 2022Q1

REPORT INFORMATION
  Report Type: Spontaneous
  Country: US (occurrence: None)
  Receive Date: 20220103
  Receipt Date: 20220103
  Transmission Date: 20220424
  Serious: No
  Sender: FDA-Public Use
  Company Number: None

PATIENT
  Age: 34 Year
  Sex: Male
  Weight: 127.01 kg

DRUGS (1)
  1. ENBREL [Suspect]
     Active Substance: ETANERCEPT
     Indication: Ankylosing spondylitis
     Dosage: ?INJECT 50MG  SUBCUTANEOUSLY ONCE WEEKLY  AS DIRECTED
     Route: 058
     Dates: start: 202109

REACTIONS (2)
  - Therapy interrupted [None]
  - Ear infection [None]
